FAERS Safety Report 21501879 (Version 1)
Quarter: 2022Q4

REPORT INFORMATION
  Report Type: Spontaneous
  Country: US (occurrence: None)
  Receive Date: 20221025
  Receipt Date: 20221025
  Transmission Date: 20230113
  Serious: No
  Sender: FDA-Public Use
  Company Number: 2022A342369

PATIENT
  Age: 24353 Day
  Sex: Female
  Weight: 51.7 kg

DRUGS (2)
  1. SYMBICORT [Suspect]
     Active Substance: BUDESONIDE\FORMOTEROL FUMARATE DIHYDRATE
     Indication: Asthma
     Route: 055
  2. ALBUTEROL [Concomitant]
     Active Substance: ALBUTEROL

REACTIONS (4)
  - Cough [Unknown]
  - Product dose omission issue [Unknown]
  - Intentional product use issue [Unknown]
  - Device delivery system issue [Unknown]

NARRATIVE: CASE EVENT DATE: 20221007
